FAERS Safety Report 5356144-3 (Version None)
Quarter: 2007Q2

REPORT INFORMATION
  Report Type: 
  Country: None (occurrence: None)
  Receive Date: 20070613
  Receipt Date: 20070604
  Transmission Date: 20071010
  Serious: Yes (Other)
  Sender: FDA-Public Use
  Company Number: BR-PFIZER INC-2007031387

PATIENT
  Sex: Male

DRUGS (3)
  1. TERRAMICINA [Suspect]
     Indication: EYE IRRITATION
     Route: 061
  2. CAPTOPRIL [Concomitant]
     Route: 048
  3. DAONIL [Concomitant]
     Route: 048

REACTIONS (2)
  - BLOOD GLUCOSE INCREASED [None]
  - EYELID PTOSIS [None]
